FAERS Safety Report 6667462-0 (Version None)
Quarter: 2010Q2

REPORT INFORMATION
  Report Type: 
  Country: None (occurrence: None)
  Receive Date: 20100405
  Receipt Date: 20100317
  Transmission Date: 20101027
  Serious: Yes (Life-Threatening, Other)
  Sender: FDA-Public Use
  Company Number: DE-BAYER-201020117GPV

PATIENT
  Age: 64 Year
  Sex: Female

DRUGS (5)
  1. FLUDARABINE PHOSPHATE [Suspect]
     Indication: STEM CELL TRANSPLANT
     Dosage: 30 MG/M2 ON DAY 7 TO 4, 120 MG/M2 IN TOTAL
  2. CYCLOPHOSPHAMIDE [Suspect]
     Indication: STEM CELL TRANSPLANT
     Dosage: 30 MG/KG ON DAYS 4 AND 5, 60 MG/KG IN TOTAL
  3. CYCLOSPORINE [Suspect]
     Indication: STEM CELL TRANSPLANT
  4. MYCOPHENOLATE MOFETIL [Suspect]
     Indication: STEM CELL TRANSPLANT
  5. ACYCLOVIR [Concomitant]

REACTIONS (11)
  - DEVICE RELATED INFECTION [None]
  - FEBRILE NEUTROPENIA [None]
  - FLUID RETENTION [None]
  - HEPATOMEGALY [None]
  - JAUNDICE [None]
  - MULTI-ORGAN FAILURE [None]
  - NERVOUS SYSTEM DISORDER [None]
  - RENAL FAILURE [None]
  - RESPIRATORY FAILURE [None]
  - THROMBOCYTOPENIA [None]
  - VENOOCCLUSIVE LIVER DISEASE [None]
